FAERS Safety Report 12108378 (Version 3)
Quarter: 2016Q3

REPORT INFORMATION
  Report Type: Spontaneous
  Country: CA (occurrence: CA)
  Receive Date: 20160224
  Receipt Date: 20160728
  Transmission Date: 20161109
  Serious: Yes (Hospitalization, Other)
  Sender: FDA-Public Use
  Company Number: CA-009507513-1602CAN009747

PATIENT
  Sex: Female

DRUGS (2)
  1. TEMODAL [Suspect]
     Active Substance: TEMOZOLOMIDE
     Indication: GLIOBLASTOMA MULTIFORME
     Dosage: 115 MG, UNK
     Route: 048
     Dates: start: 2015
  2. TEMODAL [Suspect]
     Active Substance: TEMOZOLOMIDE
     Dosage: 85 MG, QD
     Route: 048
     Dates: start: 201503

REACTIONS (3)
  - Neoplasm recurrence [Unknown]
  - Glioblastoma multiforme [Not Recovered/Not Resolved]
  - Laceration [Unknown]

NARRATIVE: CASE EVENT DATE: 2016
